FAERS Safety Report 13988311 (Version 3)
Quarter: 2018Q1

REPORT INFORMATION
  Report Type: Spontaneous
  Country: US (occurrence: US)
  Receive Date: 20170919
  Receipt Date: 20180110
  Transmission Date: 20180508
  Serious: Yes (Hospitalization, Other)
  Sender: FDA-Public Use
  Company Number: US-BAYER-2017-177248

PATIENT
  Age: 36 Year
  Sex: Female
  Weight: 102.4 kg

DRUGS (3)
  1. MIRENA [Suspect]
     Active Substance: LEVONORGESTREL
     Indication: CONTRACEPTION
     Dosage: 20 MCG/24HR, CONT
     Route: 015
     Dates: start: 20170629
  2. MIRENA [Suspect]
     Active Substance: LEVONORGESTREL
  3. MIRENA [Suspect]
     Active Substance: LEVONORGESTREL
     Indication: MENORRHAGIA

REACTIONS (6)
  - Uterine enlargement [None]
  - Device expulsion [None]
  - Fatigue [None]
  - Genital haemorrhage [None]
  - Dysfunctional uterine bleeding [None]
  - Abdominal pain [None]

NARRATIVE: CASE EVENT DATE: 20170817
